FAERS Safety Report 8338087-6 (Version None)
Quarter: 2012Q2

REPORT INFORMATION
  Report Type: 
  Country: None (occurrence: None)
  Receive Date: 20120504
  Receipt Date: 20120424
  Transmission Date: 20120825
  Serious: Yes (Hospitalization, Other)
  Sender: FDA-Public Use
  Company Number: JP-JNJFOC-20120411274

PATIENT
  Age: 49 Year
  Sex: Male
  Weight: 68.1 kg

DRUGS (2)
  1. REMICADE [Suspect]
     Indication: CROHN'S DISEASE
     Route: 042
     Dates: start: 20020901
  2. REMICADE [Suspect]
     Dosage: A TOTAL OF 50 DOSES ADMINISTERED
     Route: 042
     Dates: start: 20100819

REACTIONS (8)
  - RECTAL DISCHARGE [None]
  - PROCTALGIA [None]
  - STAPHYLOCOCCAL INFECTION [None]
  - ANAEMIA [None]
  - MELAENA [None]
  - ABDOMINAL PAIN [None]
  - SEPTIC EMBOLUS [None]
  - DEVICE RELATED INFECTION [None]
